FAERS Safety Report 4675092-5 (Version None)
Quarter: 2005Q2

REPORT INFORMATION
  Report Type: 
  Country: None (occurrence: None)
  Receive Date: 20050525
  Receipt Date: 20050512
  Transmission Date: 20051028
  Serious: Yes (Other)
  Sender: FDA-Public Use
  Company Number: HQWYE734013MAY05

PATIENT
  Age: 59 Year
  Sex: Male

DRUGS (9)
  1. RAPAMUNE [Suspect]
     Indication: PROPHYLAXIS AGAINST TRANSPLANT REJECTION
     Dosage: 4 M G 1X PER 1 DAY ORAL; 2 MG 1X PER DAY ORAL; 3 MG 1X PER 1 DAY ORAL
     Route: 048
     Dates: start: 20050420, end: 20050420
  2. RAPAMUNE [Suspect]
     Indication: PROPHYLAXIS AGAINST TRANSPLANT REJECTION
     Dosage: 4 M G 1X PER 1 DAY ORAL; 2 MG 1X PER DAY ORAL; 3 MG 1X PER 1 DAY ORAL
     Route: 048
     Dates: start: 20050421, end: 20050429
  3. RAPAMUNE [Suspect]
     Indication: PROPHYLAXIS AGAINST TRANSPLANT REJECTION
     Dosage: 4 M G 1X PER 1 DAY ORAL; 2 MG 1X PER DAY ORAL; 3 MG 1X PER 1 DAY ORAL
     Route: 048
     Dates: start: 20050430
  4. CYCLOSPORINE [Concomitant]
  5. ATLANSIL (AMIODARAONE) [Concomitant]
  6. ERYTHROPOIETIN (ERYTHROPOIETIN) [Concomitant]
  7. OMEPRAZOLE [Concomitant]
  8. BACTRIM [Concomitant]
  9. PREDNISONE [Concomitant]

REACTIONS (1)
  - ATRIAL FIBRILLATION [None]
